FAERS Safety Report 18709998 (Version 1)
Quarter: 2021Q1

REPORT INFORMATION
  Report Type: Spontaneous
  Country: CN (occurrence: CN)
  Receive Date: 20210106
  Receipt Date: 20210106
  Transmission Date: 20210419
  Serious: Yes (Hospitalization)
  Sender: FDA-Public Use
  Company Number: CN-BAXTER-2020BAX026847

PATIENT
  Age: 58 Year
  Sex: Male

DRUGS (9)
  1. FENTANYL. [Concomitant]
     Active Substance: FENTANYL
     Indication: INDUCTION OF ANAESTHESIA
     Route: 042
  2. MIDAZOLAM. [Concomitant]
     Active Substance: MIDAZOLAM
     Indication: INDUCTION OF ANAESTHESIA
     Route: 042
  3. REMIFENTANIL [Concomitant]
     Active Substance: REMIFENTANIL
     Indication: MAINTENANCE OF ANAESTHESIA
     Dosage: (0.05?0.2UG/KG/MIN)
     Route: 065
  4. DEXMEDETOMIDINE. [Concomitant]
     Active Substance: DEXMEDETOMIDINE
     Indication: MAINTENANCE OF ANAESTHESIA
     Route: 065
  5. CISATRACURIUM. [Concomitant]
     Active Substance: CISATRACURIUM
     Indication: ENDOTRACHEAL INTUBATION
     Route: 042
  6. SODIUM CHLORIDE PHYSIOLOGICAL SOLUTION [Suspect]
     Active Substance: SODIUM CHLORIDE
     Indication: IRRIGATION THERAPY
     Dosage: CONTINUOUS INFUSION
     Route: 008
  7. SEVOFLURANE. [Concomitant]
     Active Substance: SEVOFLURANE
     Indication: MAINTENANCE OF ANAESTHESIA
     Dosage: 1.7% TO 2.5%
     Route: 065
  8. PROPOFOL. [Concomitant]
     Active Substance: PROPOFOL
     Indication: MAINTENANCE OF ANAESTHESIA
     Route: 065
  9. ETOMIDATE. [Concomitant]
     Active Substance: ETOMIDATE
     Indication: INDUCTION OF ANAESTHESIA
     Route: 042

REACTIONS (1)
  - Generalised tonic-clonic seizure [Recovered/Resolved]
